FAERS Safety Report 23167768 (Version 1)
Quarter: 2023Q4

REPORT INFORMATION
  Report Type: Spontaneous
  Country: BE (occurrence: BE)
  Receive Date: 20231109
  Receipt Date: 20231109
  Transmission Date: 20240110
  Serious: Yes (Hospitalization)
  Sender: FDA-Public Use
  Company Number: BE-NOVOPROD-1135855

PATIENT
  Age: 14 Year
  Sex: Female
  Weight: 71.9 kg

DRUGS (3)
  1. ISOPHANE INSULIN [Suspect]
     Active Substance: INSULIN NOS
     Indication: Type 1 diabetes mellitus
     Dosage: UNK
  2. ISOPHANE INSULIN [Suspect]
     Active Substance: INSULIN NOS
     Dosage: UNK
  3. INSULIN HUMAN [Suspect]
     Active Substance: INSULIN HUMAN
     Indication: Type 1 diabetes mellitus
     Dosage: UNK

REACTIONS (6)
  - Generalised oedema [Recovered/Resolved]
  - Oliguria [Recovered/Resolved]
  - Orthopnoea [Recovered/Resolved]
  - Dyspnoea [Recovered/Resolved]
  - Weight increased [Recovering/Resolving]
  - Inappropriate schedule of product administration [Unknown]
